FAERS Safety Report 15789731 (Version 1)
Quarter: 2019Q1

REPORT INFORMATION
  Report Type: Spontaneous
  Country: US (occurrence: US)
  Receive Date: 20190104
  Receipt Date: 20190104
  Transmission Date: 20190417
  Serious: No
  Sender: FDA-Public Use
  Company Number: US-ASTRAZENECA-2018SF71370

PATIENT
  Age: 42 Year
  Sex: Male

DRUGS (4)
  1. QUETIAPINE. [Suspect]
     Active Substance: QUETIAPINE
     Indication: BIPOLAR DISORDER
     Route: 048
     Dates: end: 20170215
  2. QUETIAPINE. [Suspect]
     Active Substance: QUETIAPINE
     Indication: BIPOLAR DISORDER
     Dosage: GENERIC
     Route: 048
     Dates: start: 201503
  3. QUETIAPINE. [Suspect]
     Active Substance: QUETIAPINE
     Indication: BIPOLAR DISORDER
     Route: 048
  4. QUETIAPINE. [Suspect]
     Active Substance: QUETIAPINE
     Indication: BIPOLAR DISORDER
     Dosage: 300 MG TABLET
     Route: 048

REACTIONS (10)
  - Muscle twitching [Unknown]
  - Weight increased [Unknown]
  - Mood altered [Unknown]
  - Drug ineffective [Unknown]
  - Depression [Unknown]
  - Schizoaffective disorder [Unknown]
  - Post-traumatic stress disorder [Unknown]
  - Increased appetite [Unknown]
  - Insomnia [Unknown]
  - Hypertension [Unknown]
